FAERS Safety Report 7047111-2 (Version None)
Quarter: 2010Q4

REPORT INFORMATION
  Report Type: 
  Country: None (occurrence: None)
  Receive Date: 20101012
  Receipt Date: 20100930
  Transmission Date: 20110411
  Serious: Yes (Hospitalization)
  Sender: FDA-Public Use
  Company Number: 2010JP004407

PATIENT
  Age: 54 Year
  Sex: Female
  Weight: 92 kg

DRUGS (9)
  1. PROGRAF [Suspect]
     Indication: RHEUMATOID ARTHRITIS
     Dosage: 3 MG, UID/QD, ORAL
     Route: 048
     Dates: start: 20050501, end: 20090702
  2. VOLTAREN [Concomitant]
  3. PROCYLIN (BERAPROST SODIUM) [Concomitant]
  4. ALFAROL (ALFACALCIDOL) [Concomitant]
  5. PREDNISOLONE [Concomitant]
  6. PREDNISOLONE [Concomitant]
  7. WARFARIN SODIUM [Concomitant]
  8. FAMOTIDINE [Concomitant]
  9. FOSAMAC (ALENDRONATE SODIUM) [Concomitant]

REACTIONS (6)
  - DRUG RESISTANCE [None]
  - DRUG TOXICITY [None]
  - GLOMERULONEPHRITIS RAPIDLY PROGRESSIVE [None]
  - NEPHROTIC SYNDROME [None]
  - PURPURA [None]
  - SKIN ULCER [None]
